FAERS Safety Report 7776470-8 (Version None)
Quarter: 2011Q3

REPORT INFORMATION
  Report Type: 
  Country: None (occurrence: None)
  Receive Date: 20110926
  Receipt Date: 20110913
  Transmission Date: 20111222
  Serious: Yes (Hospitalization)
  Sender: FDA-Public Use
  Company Number: US-ELI_LILLY_AND_COMPANY-US201108006422

PATIENT
  Sex: Female

DRUGS (16)
  1. OXYCODONE HCL AND ACETAMINOPHEN [Concomitant]
  2. ERGOCALCIFEROL [Concomitant]
  3. SULFAMETHOXAZOLE AND TRIMETHOPRIM DOUBLE STRENGTH [Concomitant]
  4. PREDNISONE [Concomitant]
     Indication: ARTERITIS
  5. BACTRIM [Concomitant]
  6. FORTEO [Suspect]
     Indication: OSTEOPOROSIS
     Dosage: 20 UG, QD
     Route: 065
     Dates: start: 20110730
  7. AMLODIPINE [Concomitant]
  8. FUROSEMIDE [Concomitant]
  9. HYDROXYZINE [Concomitant]
  10. FORTEO [Suspect]
     Dosage: 20 UG, QD
     Route: 065
  11. PROTOZOL                           /00012501/ [Concomitant]
  12. LEVATOL [Concomitant]
  13. NORMODYNE [Concomitant]
  14. SIMVASTATIN [Concomitant]
  15. CALCIUM D3 [Concomitant]
  16. HYDROCHLOROTHIAZID [Concomitant]

REACTIONS (3)
  - DRUG DOSE OMISSION [None]
  - SPINAL COMPRESSION FRACTURE [None]
  - INCORRECT DOSE ADMINISTERED BY DEVICE [None]
